FAERS Safety Report 14392444 (Version 4)
Quarter: 2018Q1

REPORT INFORMATION
  Report Type: Report from Study
  Country: PL (occurrence: PL)
  Receive Date: 20180116
  Receipt Date: 20180327
  Transmission Date: 20180509
  Serious: Yes (Hospitalization)
  Sender: FDA-Public Use
  Company Number: PL-ROCHE-2050145

PATIENT
  Age: 70 Year
  Sex: Male

DRUGS (25)
  1. AXUDAN [Concomitant]
     Route: 048
  2. TRANSTEC [Concomitant]
     Active Substance: BUPRENORPHINE
     Route: 065
     Dates: start: 20171016
  3. METHADONUM [Concomitant]
     Route: 058
     Dates: start: 20180102, end: 20180104
  4. PABI-DEXAMETHASON [Concomitant]
     Route: 048
     Dates: start: 20180102, end: 20180103
  5. OMEPRAZOLUM [Concomitant]
     Route: 048
  6. DUROGESIC [Concomitant]
     Active Substance: FENTANYL
     Route: 065
     Dates: start: 20180104, end: 20180104
  7. PABI-DEXAMETHASON [Concomitant]
     Route: 048
     Dates: start: 20180112
  8. CIPRONEX [Concomitant]
     Active Substance: CIPROFLOXACIN
     Route: 048
     Dates: start: 20180102, end: 20180104
  9. FRAGMIN [Concomitant]
     Active Substance: DALTEPARIN SODIUM
     Route: 042
     Dates: start: 20180103, end: 20180104
  10. NO-SPA [Concomitant]
     Active Substance: DROTAVERINE HYDROCHLORIDE
     Route: 042
     Dates: start: 20180104, end: 20180104
  11. NYSTATYNA [Concomitant]
     Route: 048
     Dates: start: 20180112
  12. ENZALUTAMIDE [Suspect]
     Active Substance: ENZALUTAMIDE
     Indication: HORMONE-REFRACTORY PROSTATE CANCER
     Dosage: DOSE OF LAST SUSPECTED ENZALUTAMIDE PRIOR TO THE SAE: 11/DEC/2017
     Route: 048
     Dates: start: 20171031
  13. CORONAL (BISOPROLOL FUMARATE) [Concomitant]
     Route: 048
  14. FUROSEMIDUM [Concomitant]
     Active Substance: FUROSEMIDE
     Route: 042
     Dates: start: 20180102, end: 20180104
  15. NEOPARIN [Concomitant]
     Route: 058
  16. MILURIT [Concomitant]
     Active Substance: ALLOPURINOL
     Route: 048
  17. TRITACE [Concomitant]
     Active Substance: RAMIPRIL
     Route: 048
     Dates: start: 20180104, end: 20180104
  18. PARACETAMOL [Concomitant]
     Active Substance: ACETAMINOPHEN
     Route: 042
     Dates: start: 20180102, end: 20180104
  19. CITAL (CITALOPRAM) [Concomitant]
     Route: 048
     Dates: start: 20180112
  20. BISOCARD [Concomitant]
     Active Substance: BISOPROLOL
     Route: 048
     Dates: start: 20180103, end: 20180104
  21. SEVREDOL [Concomitant]
     Active Substance: MORPHINE
     Route: 048
     Dates: start: 20180112
  22. ATEZOLIZUMAB. [Suspect]
     Active Substance: ATEZOLIZUMAB
     Indication: HORMONE-REFRACTORY PROSTATE CANCER
     Dosage: DATE OF MOST RECENT DOSE OF ATEZOLIZUMAB PRIOR TO THE SAE: 11/DEC/2017
     Route: 042
     Dates: start: 20171031
  23. DIPHERELINE [Concomitant]
     Active Substance: TRIPTORELIN ACETATE
     Route: 030
     Dates: start: 20141202
  24. MILURIT [Concomitant]
     Active Substance: ALLOPURINOL
     Route: 048
     Dates: start: 20180102, end: 20180104
  25. ENCORTON [Concomitant]
     Active Substance: PREDNISONE
     Route: 048
     Dates: start: 20180103, end: 20180104

REACTIONS (1)
  - Autoimmune myocarditis [Recovered/Resolved]

NARRATIVE: CASE EVENT DATE: 20180104
